FAERS Safety Report 9913681 (Version 1)
Quarter: 2014Q1

REPORT INFORMATION
  Report Type: Spontaneous
  Country: US (occurrence: None)
  Receive Date: 20140218
  Receipt Date: 20140218
  Transmission Date: 20141002
  Serious: No
  Sender: FDA-Public Use
  Company Number: None

PATIENT
  Age: 62 Year
  Sex: Female
  Weight: 64.5 kg

DRUGS (1)
  1. DICLOFENAC SODIUM DELAYED RELEASE [Suspect]
     Indication: ARTHRITIS
     Route: 048
     Dates: start: 2010, end: 201310

REACTIONS (1)
  - Renal failure chronic [None]
